FAERS Safety Report 25622686 (Version 1)
Quarter: 2025Q3

REPORT INFORMATION
  Report Type: Spontaneous
  Country: US (occurrence: None)
  Receive Date: 20250729
  Receipt Date: 20250729
  Transmission Date: 20251020
  Serious: Yes (Hospitalization)
  Sender: FDA-CTU
  Company Number: None

PATIENT
  Age: 52 Year
  Sex: Male
  Weight: 78.75 kg

DRUGS (1)
  1. HERBALS\MITRAGYNINE [Suspect]
     Active Substance: HERBALS\MITRAGYNINE
     Indication: Energy increased
     Dates: start: 20250220, end: 20250630

REACTIONS (11)
  - Substance use [None]
  - Withdrawal syndrome [None]
  - Nausea [None]
  - Vomiting [None]
  - Confusional state [None]
  - Asthenia [None]
  - Arthralgia [None]
  - Bone pain [None]
  - Headache [None]
  - Constipation [None]
  - Hyperhidrosis [None]

NARRATIVE: CASE EVENT DATE: 20250630
